FAERS Safety Report 6086537-0 (Version None)
Quarter: 2009Q1

REPORT INFORMATION
  Report Type: 
  Country: None (occurrence: None)
  Receive Date: 20090218
  Receipt Date: 20090212
  Transmission Date: 20090719
  Serious: Yes (Death)
  Sender: FDA-Public Use
  Company Number: APP200900071

PATIENT
  Age: 48 Year
  Sex: Male

DRUGS (5)
  1. HEPARIN SODIUM INJECTION [Suspect]
     Indication: ANTICOAGULANT THERAPY
     Dates: start: 20090114, end: 20090114
  2. ANGIOMAX [Suspect]
     Indication: PERCUTANEOUS CORONARY INTERVENTION
     Dosage: 0.75 MG/KG, ONCE, INTRAVENOUS BOLUS; 1.75 MG/KG, 1 IN 1 HR, INTRAVENOUS
     Dates: start: 20090114, end: 20090114
  3. INTEGRILIN [Suspect]
     Indication: ANTICOAGULANT THERAPY
     Dates: start: 20090114, end: 20090114
  4. ASPIRIN [Concomitant]
  5. PLAVIX [Concomitant]

REACTIONS (5)
  - BLOOD PRESSURE DECREASED [None]
  - CARDIAC ARREST [None]
  - COAGULATION TIME PROLONGED [None]
  - CORONARY ARTERY THROMBOSIS [None]
  - THROMBOSIS IN DEVICE [None]
